FAERS Safety Report 6469255-6 (Version None)
Quarter: 2009Q4

REPORT INFORMATION
  Report Type: 
  Country: None (occurrence: None)
  Receive Date: 20091203
  Receipt Date: 20080108
  Transmission Date: 20100525
  Serious: Yes (Hospitalization, Other)
  Sender: FDA-Public Use
  Company Number: US-ELI_LILLY_AND_COMPANY-US200704004796

PATIENT
  Sex: Female
  Weight: 63.492 kg

DRUGS (15)
  1. ZYPREXA [Suspect]
     Dosage: 5 MG, EACH EVENING
     Route: 048
     Dates: start: 20010810
  2. ZYPREXA [Suspect]
     Dosage: 2.5 MG, EACH EVENING
     Dates: start: 20060221
  3. LITHANE [Concomitant]
     Dates: start: 20010501
  4. DEPAKOTE [Concomitant]
     Dates: start: 19990101
  5. ALPRAZOLAM [Concomitant]
     Dates: start: 20020301
  6. LIBRIUM [Concomitant]
     Dates: start: 20020301
  7. VISTARIL [Concomitant]
     Dates: start: 20020601
  8. CELEXA [Concomitant]
     Dates: start: 19990401
  9. PAXIL [Concomitant]
     Dates: start: 19980101
  10. LEXAPRO [Concomitant]
     Dates: start: 20060401
  11. LOPRESSOR [Concomitant]
     Dates: start: 20060401
  12. DELTASONE [Concomitant]
     Dates: start: 20020301
  13. DEPO-PROVERA [Concomitant]
     Dates: start: 20020301
  14. MICROZIDE [Concomitant]
     Dates: start: 20020601
  15. LASIX [Concomitant]
     Dates: start: 20030101

REACTIONS (6)
  - BLOOD GLUCOSE INCREASED [None]
  - BLOOD TRIGLYCERIDES INCREASED [None]
  - DIABETIC KETOACIDOSIS [None]
  - MALIGNANT HYPERTENSION [None]
  - MYOCARDIAL INFARCTION [None]
  - TYPE 2 DIABETES MELLITUS [None]
